FAERS Safety Report 6449587-8 (Version None)
Quarter: 2009Q4

REPORT INFORMATION
  Report Type: 
  Country: None (occurrence: None)
  Receive Date: 20091120
  Receipt Date: 20091113
  Transmission Date: 20100525
  Serious: Yes (Hospitalization)
  Sender: FDA-Public Use
  Company Number: US-ROXANE LABORATORIES, INC.-2009-RO-01078RO

PATIENT
  Sex: Female
  Weight: 66 kg

DRUGS (12)
  1. MYCOPHENOLATE MOFETIL [Suspect]
     Indication: SCLERODERMA
     Dosage: 2000 MG
     Route: 048
     Dates: start: 20090901, end: 20090905
  2. MYCOPHENOLATE MOFETIL [Suspect]
     Indication: LUNG DISORDER
     Dosage: 2000 MG
     Route: 048
     Dates: start: 20091005, end: 20091019
  3. NEXIUM [Concomitant]
     Indication: GASTROOESOPHAGEAL REFLUX DISEASE
     Dosage: 80 MG
  4. THYROID PILL [Concomitant]
     Indication: THYROID DISORDER
  5. CALCIUM PLUS D [Concomitant]
     Indication: OSTEOPOROSIS
     Dosage: 1000 MG
  6. FERROUS SULFATE TAB [Concomitant]
     Indication: ANAEMIA
     Dosage: 325 MG
  7. BIOTIN [Concomitant]
     Indication: HAIR DISORDER
     Dosage: 1000 MG
  8. BENAZEPRIL HCTZ [Concomitant]
     Indication: BLOOD PRESSURE
  9. LEVOXYL [Concomitant]
     Indication: THYROID DISORDER
     Dosage: 88 MCG
  10. NIFEDIPINE [Concomitant]
     Indication: RAYNAUD'S PHENOMENON
     Dosage: 30 MG
  11. HYDROCODONE BITARTRATE AND ACETAMINOPHEN [Concomitant]
     Indication: PAIN
  12. AMITRIPLYLINE HCL [Concomitant]
     Indication: PAIN

REACTIONS (6)
  - BLOOD PRESSURE DECREASED [None]
  - DEHYDRATION [None]
  - GASTROINTESTINAL DISORDER [None]
  - HEART RATE INCREASED [None]
  - INSOMNIA [None]
  - NERVOUSNESS [None]
